FAERS Safety Report 19704550 (Version 2)
Quarter: 2021Q4

REPORT INFORMATION
  Report Type: Report from Study
  Country: US (occurrence: US)
  Receive Date: 20210816
  Receipt Date: 20211220
  Transmission Date: 20220303
  Serious: Yes (Hospitalization, Other)
  Sender: FDA-Public Use
  Company Number: US-TAKEDA-2021TUS049576

PATIENT
  Age: 31 Year
  Sex: Female
  Weight: 103.86 kg

DRUGS (26)
  1. LANADELUMAB [Suspect]
     Active Substance: LANADELUMAB
     Indication: Hereditary angioedema
     Dosage: 300 MILLIGRAM, Q2WEEKS
     Route: 065
     Dates: start: 20190227
  2. FIRAZYR [Suspect]
     Active Substance: ICATIBANT ACETATE
     Indication: Product used for unknown indication
     Dosage: 30 MILLIGRAM
     Route: 065
  3. FIRAZYR [Suspect]
     Active Substance: ICATIBANT ACETATE
     Indication: Product used for unknown indication
     Dosage: 30 MILLIGRAM
     Route: 065
  4. LORATADINE [Suspect]
     Active Substance: LORATADINE
     Indication: Rhinitis allergic
     Dosage: 10 MILLIGRAM
     Route: 048
     Dates: start: 2002
  5. MODERNA COVID-19 VACCINE [Concomitant]
     Active Substance: ELASOMERAN
     Indication: COVID-19 immunisation
     Dosage: 0.5 MILLILITER
     Route: 030
     Dates: start: 20210220, end: 20210220
  6. MODERNA COVID-19 VACCINE [Concomitant]
     Active Substance: ELASOMERAN
     Dosage: 0.5 MILLILITER
     Route: 030
     Dates: start: 20210320, end: 20210320
  7. SODIUM CHLORIDE [Concomitant]
     Active Substance: SODIUM CHLORIDE
     Indication: Fluid replacement
     Dosage: 125 ML/HR
     Route: 042
     Dates: start: 20210731, end: 20210802
  8. SODIUM CHLORIDE [Concomitant]
     Active Substance: SODIUM CHLORIDE
     Indication: Catheter management
     Dosage: 10 MILLILITER
     Route: 042
     Dates: start: 20210731, end: 20210802
  9. SODIUM CHLORIDE [Concomitant]
     Active Substance: SODIUM CHLORIDE
     Dosage: 3 MILLILITER
     Route: 042
     Dates: start: 20210731, end: 20210802
  10. ROCEPHIN [Concomitant]
     Active Substance: CEFTRIAXONE SODIUM
     Indication: Pyelonephritis acute
     Dosage: 2 GRAM
     Route: 042
     Dates: start: 20210731, end: 20210801
  11. LOVENOX [Concomitant]
     Active Substance: ENOXAPARIN SODIUM
     Indication: Thrombosis
     Dosage: 40 MILLIGRAM
     Route: 058
     Dates: start: 20210801, end: 20210802
  12. LOVENOX [Concomitant]
     Active Substance: ENOXAPARIN SODIUM
     Indication: Prophylaxis
  13. NORCO [Concomitant]
     Active Substance: ACETAMINOPHEN\HYDROCODONE BITARTRATE
     Indication: Pain
     Dosage: 1 DOSAGE FORM
     Route: 048
     Dates: start: 20210731, end: 20210802
  14. DILAUDID [Concomitant]
     Active Substance: HYDROMORPHONE HYDROCHLORIDE
     Indication: Pain
     Dosage: 1 MILLIGRAM
     Route: 042
     Dates: start: 20210731, end: 20210731
  15. DILAUDID [Concomitant]
     Active Substance: HYDROMORPHONE HYDROCHLORIDE
     Dosage: 0.5 MILLIGRAM
     Route: 042
     Dates: start: 20210731, end: 20210802
  16. IOPAMIDOL [Concomitant]
     Active Substance: IOPAMIDOL
     Indication: Scan with contrast
     Dosage: 76 PERCENT
     Route: 042
     Dates: start: 20210731, end: 20210731
  17. FLAGYL [Concomitant]
     Active Substance: METRONIDAZOLE\METRONIDAZOLE HYDROCHLORIDE
     Indication: Pyelonephritis acute
     Dosage: 500 MILLIGRAM
     Route: 042
     Dates: start: 20210731, end: 20210802
  18. FLAGYL [Concomitant]
     Active Substance: METRONIDAZOLE\METRONIDAZOLE HYDROCHLORIDE
     Dosage: 500 MILLIGRAM
     Route: 048
     Dates: start: 20210802, end: 20210805
  19. COMPAZINE [Concomitant]
     Active Substance: PROCHLORPERAZINE MALEATE
     Indication: Nausea
     Dosage: 10 MILLIGRAM
     Route: 042
     Dates: start: 20210801, end: 20210802
  20. ZOFRAN [Concomitant]
     Active Substance: ONDANSETRON HYDROCHLORIDE
     Indication: Nausea
     Dosage: 4 MILLIGRAM
     Route: 048
     Dates: start: 20210802, end: 20210805
  21. OMNICEF [Concomitant]
     Active Substance: CEFDINIR
     Indication: Pyelonephritis acute
     Dosage: 300 MILLIGRAM
     Route: 048
     Dates: start: 20210802, end: 20210805
  22. TYLENOL [Concomitant]
     Active Substance: ACETAMINOPHEN
     Indication: Ovarian cystectomy
     Dosage: 1000 MILLIGRAM
     Route: 048
     Dates: start: 20211021, end: 20211021
  23. DECADRON [Concomitant]
     Active Substance: DEXAMETHASONE
     Indication: Procedural vomiting
     Dosage: 4 MILLIGRAM
     Route: 042
     Dates: start: 20211021, end: 20211021
  24. LACTATED RINGERS SOLUTION [Concomitant]
     Active Substance: CALCIUM CHLORIDE\POTASSIUM CHLORIDE\SODIUM CHLORIDE\SODIUM LACTATE
     Indication: Fluid replacement
     Dosage: 30 UNK
     Route: 042
     Dates: start: 20211021, end: 20211021
  25. XYLOCAINE [Concomitant]
     Active Substance: LIDOCAINE HYDROCHLORIDE
     Indication: Ovarian cyst
     Dosage: 10 MILLIGRAM
     Route: 058
     Dates: start: 20211021, end: 20211021
  26. ADVIL [Concomitant]
     Active Substance: IBUPROFEN
     Indication: Ovarian cyst
     Dosage: 600 MILLIGRAM
     Route: 048
     Dates: start: 20211021, end: 20211024

REACTIONS (2)
  - Pyelonephritis acute [Recovered/Resolved]
  - Nausea [Recovered/Resolved]

NARRATIVE: CASE EVENT DATE: 20210731
